FAERS Safety Report 23933914 (Version 1)
Quarter: 2024Q2

REPORT INFORMATION
  Report Type: Spontaneous
  Country: US (occurrence: US)
  Receive Date: 20240603
  Receipt Date: 20240603
  Transmission Date: 20240716
  Serious: Yes (Other)
  Sender: FDA-Public Use
  Company Number: US-PFIZER INC-202400184684

PATIENT
  Sex: Male

DRUGS (2)
  1. ETRASIMOD [Suspect]
     Active Substance: ETRASIMOD
     Indication: Colitis ulcerative
     Dosage: UNK
  2. STELARA [Suspect]
     Active Substance: USTEKINUMAB
     Indication: Colitis ulcerative
     Dosage: UNK

REACTIONS (1)
  - Drug ineffective [Unknown]
